FAERS Safety Report 4699943-3 (Version None)
Quarter: 2005Q2

REPORT INFORMATION
  Report Type: 
  Country: None (occurrence: None)
  Receive Date: 20050623
  Receipt Date: 20050610
  Transmission Date: 20051028
  Serious: Yes (Other)
  Sender: FDA-Public Use
  Company Number: 200504889

PATIENT
  Age: 73 Year
  Sex: Female

DRUGS (7)
  1. RESTASIS [Suspect]
     Indication: DRY EYE
  2. ADVIL [Concomitant]
  3. EYE CAPS (VITAMINS FOR THE EYE) [Concomitant]
  4. CALCIUM GLUCONATE [Concomitant]
  5. CENTRUM MULTIVITAMINS [Concomitant]
  6. METAMUCIL [Concomitant]
  7. ELESTAT [Concomitant]

REACTIONS (3)
  - OPTIC ISCHAEMIC NEUROPATHY [None]
  - VISION BLURRED [None]
  - VISUAL FIELD DEFECT [None]
